FAERS Safety Report 25415169 (Version 2)
Quarter: 2025Q3

REPORT INFORMATION
  Report Type: Spontaneous
  Country: CN (occurrence: CN)
  Receive Date: 20250609
  Receipt Date: 20250722
  Transmission Date: 20251020
  Serious: Yes (Other)
  Sender: BEIGENE
  Company Number: CN-BEIGENE-BGN-2025-008684

PATIENT

DRUGS (3)
  1. BRUKINSA [Suspect]
     Active Substance: ZANUBRUTINIB
     Indication: Waldenstrom^s macroglobulinaemia
  2. BRUKINSA [Suspect]
     Active Substance: ZANUBRUTINIB
  3. VENETOCLAX [Concomitant]
     Active Substance: VENETOCLAX

REACTIONS (4)
  - Disease progression [Unknown]
  - Blood immunoglobulin M increased [Unknown]
  - Haemoglobin decreased [Unknown]
  - Drug ineffective [Unknown]
